FAERS Safety Report 5300401-3 (Version None)
Quarter: 2007Q2

REPORT INFORMATION
  Report Type: 
  Country: None (occurrence: None)
  Receive Date: 20070413
  Receipt Date: 20070413
  Transmission Date: 20071010
  Serious: Yes (Hospitalization)
  Sender: FDA-Public Use
  Company Number: None

PATIENT
  Sex: Female

DRUGS (2)
  1. XELODA [Suspect]
     Dosage: 500MG 2 - BID PO MID -JAN
     Route: 048
  2. XELODA [Suspect]
     Dosage: 150MG 2 - BID PO ERLY- APRIL
     Route: 048
     Dates: start: 20070401

REACTIONS (1)
  - DIARRHOEA [None]
